FAERS Safety Report 25949540 (Version 1)
Quarter: 2025Q4

REPORT INFORMATION
  Report Type: Spontaneous
  Country: EU (occurrence: EU)
  Receive Date: 20251022
  Receipt Date: 20251022
  Transmission Date: 20260119
  Serious: Yes (Hospitalization, Other)
  Sender: DR REDDYS
  Company Number: EU-AFSSAPS-AVCN2025000697

PATIENT
  Age: 48 Year
  Sex: Male

DRUGS (1)
  1. NICOTINE [Suspect]
     Active Substance: NICOTINE
     Indication: Product used for unknown indication
     Dosage: ROUTE: RESPIRATORY (INHALATION)
     Route: 055

REACTIONS (3)
  - Hypoxia [Recovering/Resolving]
  - Sedation complication [Recovered/Resolved]
  - Drug abuse [Not Recovered/Not Resolved]

NARRATIVE: CASE EVENT DATE: 20250201
